FAERS Safety Report 8349733-5 (Version None)
Quarter: 2012Q2

REPORT INFORMATION
  Report Type: 
  Country: None (occurrence: None)
  Receive Date: 20120510
  Receipt Date: 20100706
  Transmission Date: 20120825
  Serious: No
  Sender: FDA-Public Use
  Company Number: US-TEVA-2010003866

PATIENT
  Sex: Male
  Weight: 78.088 kg

DRUGS (5)
  1. NUVIGIL [Suspect]
     Indication: SOMNOLENCE
     Dosage: 225 MILLIGRAM;
     Route: 048
     Dates: start: 20100701
  2. CLONAZEPAM [Concomitant]
     Indication: ANXIETY
     Dates: start: 20090101
  3. TOPROL-XL [Concomitant]
     Indication: TACHYCARDIA
     Dates: start: 20090101
  4. ZOLOFT [Concomitant]
     Indication: DEPRESSION
     Dates: start: 20060101
  5. CLONAZEPAM [Concomitant]
     Indication: PANIC DISORDER

REACTIONS (5)
  - DRUG INEFFECTIVE FOR UNAPPROVED INDICATION [None]
  - HEART RATE INCREASED [None]
  - CHANGE IN SUSTAINED ATTENTION [None]
  - HYPERHIDROSIS [None]
  - LIBIDO INCREASED [None]
